FAERS Safety Report 10751789 (Version 5)
Quarter: 2015Q3

REPORT INFORMATION
  Report Type: Report from Study
  Country: BE (occurrence: BE)
  Receive Date: 20150130
  Receipt Date: 20150727
  Transmission Date: 20151125
  Serious: Yes (Hospitalization)
  Sender: FDA-Public Use
  Company Number: BE-ABBVIE-15P-013-1340026-00

PATIENT
  Sex: Female

DRUGS (7)
  1. DUODOPA [Suspect]
     Active Substance: CARBIDOPA\LEVODOPA
     Dosage: DOSAGE CONTINUOUSLY MONITORED AND ADJUSTED
     Route: 050
     Dates: start: 20140318, end: 20141013
  2. DUODOPA [Suspect]
     Active Substance: CARBIDOPA\LEVODOPA
     Dosage: AM: 3.5ML; CD:1.3ML/H FOR 16HRS; ED: 0.9ML
     Route: 050
     Dates: start: 20150206, end: 20150529
  3. DUODOPA [Suspect]
     Active Substance: CARBIDOPA\LEVODOPA
     Dosage: MD: 3.5ML, C: 1.4ML/H FOR 16HRS AND ED: 1ML
     Route: 050
     Dates: start: 20141013, end: 20150206
  4. MIRAPEXIN [Concomitant]
     Active Substance: PRAMIPEXOLE
     Indication: PRODUCT USED FOR UNKNOWN INDICATION
     Dosage: EMERGENCY MEDICATION
  5. DUODOPA [Suspect]
     Active Substance: CARBIDOPA\LEVODOPA
     Dosage: AM: 3.5ML; CD: 1.4ML/H FOR 16 HRS; ED: 0.9ML
     Route: 050
     Dates: start: 20150529
  6. PROLOPA [Concomitant]
     Active Substance: BENSERAZIDE\LEVODOPA
     Indication: PRODUCT USED FOR UNKNOWN INDICATION
     Dosage: FORM STRENGTH:200MG/50MG;EMERGENCY MEDICATION
  7. DUODOPA [Suspect]
     Active Substance: CARBIDOPA\LEVODOPA
     Indication: PARKINSON^S DISEASE
     Dosage: MD: 5ML, CD: 2.1ML/H FOR 16HRS, ED: 1ML
     Route: 050
     Dates: start: 20140317, end: 20140318

REACTIONS (5)
  - Back pain [Recovering/Resolving]
  - Back disorder [Unknown]
  - Dyskinesia [Unknown]
  - Fall [Unknown]
  - Pain [Unknown]
